FAERS Safety Report 15410951 (Version 1)
Quarter: 2018Q3

REPORT INFORMATION
  Report Type: Spontaneous
  Country: US (occurrence: US)
  Receive Date: 20180919
  Receipt Date: 20180919
  Transmission Date: 20181010
  Serious: No
  Sender: FDA-Public Use
  Company Number: None

PATIENT
  Age: 51 Year
  Sex: Female
  Weight: 57.6 kg

DRUGS (8)
  1. XIIDRA [Suspect]
     Active Substance: LIFITEGRAST
     Indication: MEIBOMIAN GLAND DYSFUNCTION
     Dosage: ?          QUANTITY:1 GTT DROP(S);?
     Route: 047
     Dates: start: 20180822, end: 20180828
  2. VITAMIN B [Concomitant]
     Active Substance: VITAMIN B
  3. GARLIC CAPSULES [Concomitant]
  4. ORACEA [Concomitant]
     Active Substance: DOXYCYCLINE
  5. XIIDRA [Suspect]
     Active Substance: LIFITEGRAST
     Indication: OCULAR ROSACEA
  6. XIIDRA [Suspect]
     Active Substance: LIFITEGRAST
     Indication: DRY EYE
  7. XARELTO [Concomitant]
     Active Substance: RIVAROXABAN
  8. 80MG ASPIRIN [Concomitant]

REACTIONS (2)
  - Eye swelling [None]
  - Dysgeusia [None]

NARRATIVE: CASE EVENT DATE: 20180827
